FAERS Safety Report 20880256 (Version 1)
Quarter: 2022Q2

REPORT INFORMATION
  Report Type: Report from Study
  Country: KR (occurrence: None)
  Receive Date: 20220526
  Receipt Date: 20220526
  Transmission Date: 20220721
  Serious: Yes (Hospitalization)
  Sender: FDA-Public Use
  Company Number: KR-ROCHE-1858394

PATIENT
  Age: 53 Year
  Sex: Male
  Weight: 78.4 kg

DRUGS (15)
  1. ATEZOLIZUMAB [Suspect]
     Active Substance: ATEZOLIZUMAB
     Indication: Transitional cell carcinoma
     Route: 042
     Dates: start: 20161010
  2. CARBOPLATIN [Suspect]
     Active Substance: CARBOPLATIN
     Indication: Transitional cell carcinoma
     Dosage: DOSE OF LAST CARBOPLATIN, 443.3 MG DATE OF MOST RECENT DOSE, 10/NOV/2016?DATE OF MOST RECENT DOSE 47
     Route: 042
     Dates: start: 20161010
  3. GEMCITABINE [Suspect]
     Active Substance: GEMCITABINE
     Indication: Transitional cell carcinoma
     Dosage: DOSE MOST RECENT DOSE OF GEMCITABINE, 2000 MG ON 17/NOV/2016?DATE OF MOST RECENT DOSE OF GEMCITABINE
     Route: 042
     Dates: start: 20161010
  4. PALONOSETRON [Concomitant]
     Active Substance: PALONOSETRON
     Indication: Prophylaxis
     Route: 042
     Dates: start: 20161010, end: 20170222
  5. ONDANSETRON [Concomitant]
     Active Substance: ONDANSETRON
     Indication: Nausea
     Route: 048
     Dates: start: 20161208, end: 20161221
  6. ONDANSETRON [Concomitant]
     Active Substance: ONDANSETRON
     Route: 048
     Dates: start: 20170112, end: 20170209
  7. CHLORPHENIRAMINE [Concomitant]
     Active Substance: CHLORPHENIRAMINE
     Indication: Pruritus
     Route: 042
     Dates: start: 20161222
  8. CETAMADOL [Concomitant]
     Route: 048
     Dates: start: 20150322, end: 20170627
  9. FEBUXOSTAT [Concomitant]
     Active Substance: FEBUXOSTAT
     Indication: Acute kidney injury
     Route: 048
     Dates: start: 20180725
  10. AMLODIPINE [Concomitant]
     Active Substance: AMLODIPINE BESYLATE
     Indication: Hypertension
     Route: 048
     Dates: start: 20180913, end: 20190521
  11. MORPHINE HYDROCHLORIDE [Concomitant]
     Active Substance: MORPHINE HYDROCHLORIDE
     Route: 042
     Dates: start: 20190705
  12. HUMULIN NOS [Concomitant]
     Active Substance: INSULIN HUMAN
     Indication: Hyperkalaemia
     Route: 042
     Dates: start: 20190705
  13. FUROSEMIDE [Concomitant]
     Active Substance: FUROSEMIDE
     Indication: Acute kidney injury
     Route: 042
     Dates: start: 20190706
  14. METOCLOPRAMIDE [Concomitant]
     Active Substance: METOCLOPRAMIDE
     Indication: Vomiting
     Route: 042
     Dates: start: 20200209, end: 20200209
  15. URSODIOL [Concomitant]
     Active Substance: URSODIOL
     Route: 048
     Dates: start: 20200211

REACTIONS (4)
  - Pyelonephritis acute [Recovered/Resolved]
  - Pyelonephritis acute [Recovered/Resolved]
  - Urinary tract infection [Recovered/Resolved]
  - Urinary tract infection [Recovered/Resolved]

NARRATIVE: CASE EVENT DATE: 20161120
